FAERS Safety Report 9442029 (Version 1)
Quarter: 2013Q3

REPORT INFORMATION
  Report Type: Spontaneous
  Country: US (occurrence: US)
  Receive Date: 20130806
  Receipt Date: 20130806
  Transmission Date: 20140515
  Serious: Yes (Hospitalization)
  Sender: FDA-Public Use
  Company Number: US-ROXANE LABORATORIES, INC.-2013-RO-01283RO

PATIENT
  Age: 67 Year
  Sex: Male

DRUGS (6)
  1. QUETIAPINE FUMARATE [Suspect]
     Dosage: 800 MG
  2. RISPERIDONE [Suspect]
     Indication: AGGRESSION
     Route: 048
  3. TRAZODONE [Suspect]
  4. MELATONIN [Suspect]
  5. SIMVASTATIN [Suspect]
     Indication: HYPERLIPIDAEMIA
  6. TEMAZEPAM [Suspect]

REACTIONS (1)
  - Pleurothotonus [Recovered/Resolved]
